FAERS Safety Report 14350042 (Version 1)
Quarter: 2018Q1

REPORT INFORMATION
  Report Type: Spontaneous
  Country: US (occurrence: US)
  Receive Date: 20180103
  Receipt Date: 20180103
  Transmission Date: 20180509
  Serious: Yes (Other)
  Sender: FDA-Public Use
  Company Number: None

PATIENT
  Sex: Male
  Weight: 90.45 kg

DRUGS (12)
  1. TAROLEMUS [Concomitant]
  2. TORSEMIDE. [Concomitant]
     Active Substance: TORSEMIDE
  3. PLAVIX [Concomitant]
     Active Substance: CLOPIDOGREL BISULFATE
  4. PREDNISONE. [Concomitant]
     Active Substance: PREDNISONE
  5. INSULIN PUMP [Concomitant]
     Active Substance: INSULIN NOS
  6. CARVEDELOL [Concomitant]
  7. ULORIC [Suspect]
     Active Substance: FEBUXOSTAT
     Indication: BURSITIS
     Dosage: ?          QUANTITY:1 TABLET(S);?
     Route: 048
     Dates: start: 20171109, end: 20171121
  8. ULORIC [Suspect]
     Active Substance: FEBUXOSTAT
     Indication: GOUT
     Dosage: ?          QUANTITY:1 TABLET(S);?
     Route: 048
     Dates: start: 20171109, end: 20171121
  9. ATORVASTATIN [Concomitant]
     Active Substance: ATORVASTATIN
  10. VITAMIN C [Concomitant]
     Active Substance: ASCORBIC ACID
  11. NOVOLOG [Concomitant]
     Active Substance: INSULIN ASPART
  12. MYFORTIC [Concomitant]
     Active Substance: MYCOPHENOLATE SODIUM

REACTIONS (5)
  - Blood creatinine increased [None]
  - Therapy cessation [None]
  - Renal transplant [None]
  - Drug level increased [None]
  - Drug interaction [None]

NARRATIVE: CASE EVENT DATE: 20171123
